FAERS Safety Report 20050675 (Version 1)
Quarter: 2021Q4

REPORT INFORMATION
  Report Type: Spontaneous
  Country: US (occurrence: None)
  Receive Date: 20211109
  Receipt Date: 20211109
  Transmission Date: 20220303
  Serious: No
  Sender: FDA-Public Use
  Company Number: US-Merck Healthcare KGaA-9277731

PATIENT
  Sex: Female

DRUGS (1)
  1. REBIF [Suspect]
     Active Substance: INTERFERON BETA-1A
     Indication: Multiple sclerosis
     Route: 058
     Dates: start: 20190401

REACTIONS (4)
  - Multiple sclerosis relapse [Recovering/Resolving]
  - Memory impairment [Unknown]
  - Bone pain [Unknown]
  - Musculoskeletal pain [Unknown]
